FAERS Safety Report 14496647 (Version 1)
Quarter: 2018Q1

REPORT INFORMATION
  Report Type: Spontaneous
  Country: US (occurrence: US)
  Receive Date: 20180206
  Receipt Date: 20180206
  Transmission Date: 20180509
  Serious: No
  Sender: FDA-Public Use
  Company Number: None

PATIENT
  Age: 61 Year
  Sex: Male

DRUGS (2)
  1. AFINITOR [Suspect]
     Active Substance: EVEROLIMUS
     Indication: BONE CANCER METASTATIC
     Route: 048
     Dates: start: 20170823
  2. AFINITOR [Suspect]
     Active Substance: EVEROLIMUS
     Indication: ENDOCRINE NEOPLASM MALIGNANT
     Route: 048
     Dates: start: 20170823

REACTIONS (5)
  - Back pain [None]
  - Rash [None]
  - Fatigue [None]
  - Myalgia [None]
  - Blood cholesterol increased [None]

NARRATIVE: CASE EVENT DATE: 20180202
